FAERS Safety Report 5354337-2 (Version None)
Quarter: 2007Q2

REPORT INFORMATION
  Report Type: 
  Country: None (occurrence: None)
  Receive Date: 20070521
  Receipt Date: 20070122
  Transmission Date: 20071010
  Serious: No
  Sender: FDA-Public Use
  Company Number: WAES 0701USA03846

PATIENT
  Age: 66 Year
  Sex: Male

DRUGS (1)
  1. JANUVIA [Suspect]
     Indication: DIABETES MELLITUS NON-INSULIN-DEPENDENT
     Dosage: PO
     Route: 048
     Dates: start: 20070108

REACTIONS (2)
  - BLOOD GLUCOSE INCREASED [None]
  - MICTURITION URGENCY [None]
